FAERS Safety Report 17115050 (Version 1)
Quarter: 2019Q4

REPORT INFORMATION
  Report Type: Spontaneous
  Country: GB (occurrence: GB)
  Receive Date: 20191205
  Receipt Date: 20191205
  Transmission Date: 20200122
  Serious: Yes (Other)
  Sender: FDA-Public Use
  Company Number: GB-TEVA-2019-GB-1146781

PATIENT
  Age: 69 Year
  Sex: Female
  Weight: 100 kg

DRUGS (8)
  1. DOXYCYCLINE. [Concomitant]
     Active Substance: DOXYCYCLINE
     Dosage: 200MG INITIALLY THEN 100 MG ONCE DAILY FOR 5 DA...
     Dates: start: 20191029
  2. LORATADINE. [Concomitant]
     Active Substance: LORATADINE
     Dosage: TAKE ONE TO TWO DAILY
     Dates: start: 20180309
  3. SODIUM ALGINATE [Concomitant]
     Active Substance: SODIUM ALGINATE
     Dosage: AS DIRECTED
     Dates: start: 20180309
  4. CINNARIZINE [Concomitant]
     Active Substance: CINNARIZINE
     Indication: VERTIGO
     Dosage: 1 ONCE DAILY OR TWICE A DAY
     Dates: start: 20180309
  5. DERMOL [Concomitant]
     Active Substance: BENZALKONIUM CHLORIDE\CHLORHEXIDINE HYDROCHLORIDE\ISOPROPYL MYRISTATE\PARAFFIN
     Dosage: USE AS SOAP SUBSTITUTE
     Dates: start: 20180309
  6. CLARITHROMYCIN. [Suspect]
     Active Substance: CLARITHROMYCIN
     Dosage: 500 MG PER 12 HRS
     Dates: start: 20191028
  7. VISCOTEARS [Concomitant]
     Active Substance: CARBOMER
     Dosage: USE 3-4 TIMES A DAY
     Dates: start: 20180309
  8. VENTOLIN [Concomitant]
     Active Substance: ALBUTEROL SULFATE
     Dosage: PUFFS, 8 DOSAGE FORMS
     Dates: start: 20180309

REACTIONS (4)
  - Pruritus [Recovered/Resolved]
  - Abdominal pain [Recovered/Resolved]
  - Abdominal discomfort [Recovered/Resolved]
  - Diarrhoea [Recovered/Resolved]

NARRATIVE: CASE EVENT DATE: 20191030
